FAERS Safety Report 15998630 (Version 2)
Quarter: 2019Q1

REPORT INFORMATION
  Report Type: Spontaneous
  Country: DE (occurrence: DE)
  Receive Date: 20190223
  Receipt Date: 20190312
  Transmission Date: 20190418
  Serious: Yes (Congenital Anomaly, Other)
  Sender: FDA-Public Use
  Company Number: DE-ACCORD-108532

PATIENT
  Sex: Female
  Weight: 3.02 kg

DRUGS (7)
  1. FOLSAEURE RATIOPHARM [Concomitant]
     Indication: PROPHYLAXIS OF NEURAL TUBE DEFECT
     Dosage: 5 MG/D
     Route: 064
     Dates: start: 20170320, end: 20171211
  2. METOPROLOL. [Suspect]
     Active Substance: METOPROLOL
     Indication: GESTATIONAL HYPERTENSION
     Dosage: 125 MG/D
     Route: 064
  3. SERTRALINE [Suspect]
     Active Substance: SERTRALINE HYDROCHLORIDE
     Indication: DEPRESSION
     Dosage: 200 MG/D
     Route: 064
     Dates: start: 20170320, end: 20171211
  4. PREDNISOLONE. [Concomitant]
     Active Substance: PREDNISOLONE
     Indication: PROPHYLAXIS OF ABORTION
     Dosage: 15(MG/D)
     Route: 064
  5. L-THYROXIN [Concomitant]
     Active Substance: LEVOTHYROXINE SODIUM
     Indication: AUTOIMMUNE THYROIDITIS
     Dosage: 200 UG/D VARYING DOSAGES BETWEEN 150 AND 200UG/D
     Route: 064
     Dates: start: 20170320, end: 20171211
  6. LANTUS [Concomitant]
     Active Substance: INSULIN GLARGINE
     Indication: GESTATIONAL DIABETES
     Dosage: STRENGTH 100 I.E./ML,INJECTION SOLUTION,12 (IE/D)
     Route: 064
  7. ACTRAPID [Concomitant]
     Active Substance: INSULIN HUMAN
     Indication: GESTATIONAL DIABETES
     Dosage: 28 IE/D (BIS 10),100 I.E./ML
     Route: 064

REACTIONS (4)
  - Foetal exposure during pregnancy [Unknown]
  - Renal dysplasia [Unknown]
  - Agitation neonatal [Recovered/Resolved]
  - Congenital hydronephrosis [Recovering/Resolving]
